FAERS Safety Report 9515801 (Version 1)
Quarter: 2013Q1

REPORT INFORMATION
  Report Type: Spontaneous
  Country: US (occurrence: None)
  Receive Date: 20130305
  Receipt Date: 20130305
  Transmission Date: 20140127
  Serious: Yes (Hospitalization, Other)
  Sender: FDA-Public Use
  Company Number: 163-21880-12102669

PATIENT
  Age: 90 Year
  Sex: Male

DRUGS (9)
  1. REVLIMID [Suspect]
     Indication: PLASMA CELL MYELOMA
     Dosage: 10 MG, 1 IN1 D, PO
     Route: 048
     Dates: start: 200811
  2. LISINOPRIL (LISINOPRIL) (TABLETS) [Concomitant]
  3. PREVACID (LANSOPRAZOLE) (CAPSULES) [Concomitant]
  4. PERCOCET (OXYXOXET) (TABLETS) [Concomitant]
  5. DEXAMETHASONE (DEXAMETHASON) (TABLETS) [Concomitant]
  6. KEFLEX (CEFALEXIN MONOHYDRATE) (CAPSULES) [Concomitant]
  7. VELCADE [Concomitant]
  8. ZOMETA (ZOLEDRONIC ACID) (UNKNOWN) [Concomitant]
  9. VENOFER (SACCHARATED IRON OXIDE) (UNKNOWN) [Concomitant]

REACTIONS (3)
  - Pneumonia [None]
  - Neutropenia [None]
  - Diarrhoea [None]
